FAERS Safety Report 6179638-X (Version None)
Quarter: 2009Q2

REPORT INFORMATION
  Report Type: 
  Country: None (occurrence: None)
  Receive Date: 20090505
  Receipt Date: 20090424
  Transmission Date: 20091009
  Serious: Yes (Hospitalization)
  Sender: FDA-Public Use
  Company Number: US-MERCK-0902USA00941

PATIENT
  Age: 61 Year
  Sex: Female

DRUGS (1)
  1. FOSAMAX PLUS D [Suspect]
     Indication: OSTEOPOROSIS
     Route: 048
     Dates: start: 20060705, end: 20070202

REACTIONS (8)
  - AXILLARY MASS [None]
  - GINGIVAL BLEEDING [None]
  - OEDEMA MOUTH [None]
  - ORAL PAIN [None]
  - POLYP [None]
  - RESORPTION BONE INCREASED [None]
  - TOOTH DISORDER [None]
  - TOOTH LOSS [None]
